FAERS Safety Report 23370129 (Version 1)
Quarter: 2024Q1

REPORT INFORMATION
  Report Type: Spontaneous
  Country: US (occurrence: US)
  Receive Date: 20240105
  Receipt Date: 20240105
  Transmission Date: 20240409
  Serious: No
  Sender: FDA-Public Use
  Company Number: US-PFIZER INC-PV202400000270

PATIENT
  Age: 47 Year
  Sex: Female

DRUGS (2)
  1. ZAVZPRET [Suspect]
     Active Substance: ZAVEGEPANT HYDROCHLORIDE
     Indication: Migraine
     Dosage: 10 MG, AS NEEDED
     Route: 045
  2. ZAVZPRET [Suspect]
     Active Substance: ZAVEGEPANT HYDROCHLORIDE
     Indication: Headache

REACTIONS (2)
  - Hypoaesthesia oral [Unknown]
  - Dysphagia [Unknown]
